APPROVED DRUG PRODUCT: CEFTRIAXONE SODIUM
Active Ingredient: CEFTRIAXONE SODIUM
Strength: EQ 10GM BASE/VIAL
Dosage Form/Route: INJECTABLE;INJECTION
Application: A090701 | Product #001 | TE Code: AP
Applicant: HIKMA FARMACEUTICA PORTUGAL SA
Approved: Oct 4, 2017 | RLD: No | RS: No | Type: RX